FAERS Safety Report 7437778-9 (Version None)
Quarter: 2011Q2

REPORT INFORMATION
  Report Type: 
  Country: None (occurrence: None)
  Receive Date: 20110426
  Receipt Date: 20110422
  Transmission Date: 20111010
  Serious: Yes (Other)
  Sender: FDA-Public Use
  Company Number: A0914794A

PATIENT
  Age: 32 Year
  Sex: Male

DRUGS (9)
  1. MULTI-VITAMIN [Concomitant]
  2. FAMOTIDINE [Concomitant]
  3. XANAX [Concomitant]
     Indication: ANXIETY
  4. ALLI [Suspect]
     Indication: WEIGHT LOSS DIET
     Route: 048
  5. CETIRIZINE HCL [Concomitant]
  6. ASPIRIN [Concomitant]
     Indication: ANTICOAGULANT THERAPY
  7. ZYRTEC [Concomitant]
     Indication: MULTIPLE ALLERGIES
  8. NASONEX [Concomitant]
  9. PEPCID AC [Concomitant]

REACTIONS (5)
  - HEPATIC ENZYME INCREASED [None]
  - FAECES PALE [None]
  - ULTRASOUND LIVER [None]
  - ABDOMINAL PAIN [None]
  - NAUSEA [None]
